FAERS Safety Report 8900524 (Version 3)
Quarter: 2013Q1

REPORT INFORMATION
  Report Type: Report from Study
  Country: US (occurrence: US)
  Receive Date: 20121109
  Receipt Date: 20130211
  Transmission Date: 20140127
  Serious: Yes (Death, Hospitalization, Other)
  Sender: FDA-Public Use
  Company Number: US-PFIZER INC-2012274010

PATIENT
  Age: 12 Year
  Sex: Female

DRUGS (40)
  1. CYCLOPHOSPHAMIDE [Suspect]
     Indication: ACUTE LYMPHOCYTIC LEUKAEMIA
     Dosage: 1400 MG, UNK
     Route: 042
     Dates: start: 20121005
  2. CYTARABINE [Suspect]
     Indication: ACUTE LYMPHOCYTIC LEUKAEMIA
     Dosage: 98 MG, UNK
     Route: 042
     Dates: start: 20121002, end: 20121005
  3. CYTARABINE [Suspect]
     Dosage: 4000 MG/M2, UNK
     Route: 042
     Dates: start: 20121219, end: 20121221
  4. DOXORUBICIN HCL [Suspect]
     Indication: ACUTE LYMPHOCYTIC LEUKAEMIA
     Dosage: 40 MG, THERAPY DURATION: CONTINUED
     Route: 042
     Dates: start: 20120730, end: 20120806
  5. DASATINIB [Suspect]
     Indication: ACUTE LYMPHOCYTIC LEUKAEMIA
     Dosage: 100 MG, 1 DAY
     Route: 048
     Dates: start: 20120730, end: 20120812
  6. PEGASPARGASE [Suspect]
     Indication: ACUTE LYMPHOCYTIC LEUKAEMIA
     Dosage: 3475 IU, 1 DOSAGE FORM
     Route: 042
     Dates: start: 20121224, end: 20121224
  7. ETOPOSIDE [Suspect]
     Indication: ACUTE LYMPHOCYTIC LEUKAEMIA
     Dosage: 278 MG, UNK
     Route: 042
     Dates: start: 20121222, end: 20121223
  8. DAUNORUBICIN HYDROCHLORIDE [Suspect]
     Indication: ACUTE LYMPHOCYTIC LEUKAEMIA
     Dosage: 1 DOSAGE FORM
     Route: 042
     Dates: start: 20120723, end: 20120806
  9. DAUNORUBICIN HYDROCHLORIDE [Suspect]
     Dosage: 41.7 MG, UNK
     Route: 042
     Dates: start: 20121130
  10. VINCRISTINE SULFATE [Concomitant]
     Indication: ACUTE LYMPHOCYTIC LEUKAEMIA
     Dosage: 1 DOSAGE FORM
     Route: 042
     Dates: start: 20120723, end: 20120806
  11. NALOXONE [Concomitant]
  12. POLYETHYLENE GLYCOL 3350 [Concomitant]
     Dosage: UNK
     Dates: start: 20120727
  13. SIMETHICONE [Concomitant]
     Dosage: UNK
     Dates: start: 20120725
  14. DEXTROSE [Concomitant]
  15. HYDROMORPHONE [Concomitant]
  16. SODIUM CHLORIDE [Concomitant]
     Dosage: UNK
     Dates: start: 20120717
  17. LIDOCAINE [Concomitant]
     Dosage: UNK
     Dates: start: 20120715
  18. ATIVAN [Concomitant]
     Dosage: UNK
     Dates: start: 20120718
  19. MORPHINE [Concomitant]
     Dosage: UNK
     Dates: start: 20120716
  20. DIPHENHYDRAMINE [Concomitant]
  21. COLACE [Concomitant]
     Dosage: UNK
     Dates: start: 20120727
  22. ADRENALIN [Concomitant]
     Dosage: UNK
     Dates: start: 20120715
  23. HEPARIN FLUSH [Concomitant]
  24. HYDROCORTISONE [Concomitant]
     Dosage: UNK
     Dates: start: 20120719
  25. BACTRIM [Concomitant]
  26. SEPTRA [Concomitant]
     Dosage: UNK
     Dates: start: 20120715
  27. VANCOMYCIN [Concomitant]
     Dosage: UNK
     Dates: start: 20120726
  28. ACETAMINOPHEN [Concomitant]
     Route: 042
  29. FUROSEMIDE [Concomitant]
     Dosage: UNK
     Dates: start: 20120806
  30. MAGNESIUM [Concomitant]
     Dosage: UNK
     Dates: start: 20120728
  31. MELATONIN [Concomitant]
  32. METHYLPREDNISOLONE [Concomitant]
     Dosage: UNK
     Dates: start: 20120801, end: 20120812
  33. METRONIDAZOLE [Concomitant]
     Dosage: UNK
     Dates: start: 20120727
  34. ALBUMIN HUMAN [Concomitant]
     Dosage: UNK
     Dates: start: 20120805, end: 20120805
  35. CALCIUM CARBONATE [Concomitant]
     Dosage: UNK
     Dates: start: 20120728
  36. CEFTAZIDIME [Concomitant]
  37. CHLORHEXIDINE [Concomitant]
  38. PERIDEX [Concomitant]
     Dosage: UNK
     Dates: start: 20120802
  39. HALDOL [Concomitant]
     Dosage: UNK
     Dates: start: 20120817, end: 20120818
  40. RISPERDAL [Concomitant]
     Dosage: UNK
     Dates: start: 20120821, end: 20120827

REACTIONS (10)
  - Cardiac arrest [Fatal]
  - Bacteraemia [Recovered/Resolved]
  - Generalised oedema [Recovered/Resolved]
  - Large intestinal ulcer [Recovered/Resolved]
  - Encephalopathy [Recovered/Resolved]
  - Sepsis [Not Recovered/Not Resolved]
  - Fungaemia [Not Recovered/Not Resolved]
  - Caecitis [Not Recovered/Not Resolved]
  - Bacteraemia [Recovered/Resolved]
  - Left ventricular dysfunction [Not Recovered/Not Resolved]
